FAERS Safety Report 19203693 (Version 1)
Quarter: 2021Q2

REPORT INFORMATION
  Report Type: Spontaneous
  Country: US (occurrence: US)
  Receive Date: 20210430
  Receipt Date: 20210430
  Transmission Date: 20210717
  Serious: No
  Sender: FDA-Public Use
  Company Number: US-CELGENEUS-USA-20210405542

PATIENT
  Age: 71 Year
  Sex: Female
  Weight: 83.99 kg

DRUGS (5)
  1. ASPIRIN. [Concomitant]
     Active Substance: ASPIRIN
     Indication: PRODUCT USED FOR UNKNOWN INDICATION
     Route: 065
  2. REVLIMID [Suspect]
     Active Substance: LENALIDOMIDE
     Indication: PLASMA CELL MYELOMA
     Dosage: 5 MILLIGRAM
     Route: 048
     Dates: start: 202103, end: 20210323
  3. KEYTRUDA [Concomitant]
     Active Substance: PEMBROLIZUMAB
     Indication: NEOPLASM
     Route: 065
     Dates: start: 202006
  4. DARZALEX [Concomitant]
     Active Substance: DARATUMUMAB
     Indication: PLASMA CELL MYELOMA
     Route: 041
  5. DYAZIDE [Concomitant]
     Active Substance: HYDROCHLOROTHIAZIDE\TRIAMTERENE
     Indication: BLOOD PRESSURE MEASUREMENT
     Dosage: 37.5/25 MG
     Route: 041

REACTIONS (1)
  - Blood creatinine increased [Recovered/Resolved]

NARRATIVE: CASE EVENT DATE: 202103
